FAERS Safety Report 19351073 (Version 1)
Quarter: 2021Q2

REPORT INFORMATION
  Report Type: Spontaneous
  Country: US (occurrence: US)
  Receive Date: 20210601
  Receipt Date: 20210601
  Transmission Date: 20210717
  Serious: No
  Sender: FDA-Public Use
  Company Number: None

PATIENT
  Age: 68 Year
  Sex: Male
  Weight: 98 kg

DRUGS (2)
  1. METFORMIN (METFORMIN HCL 1000MG TAB) [Suspect]
     Active Substance: METFORMIN HYDROCHLORIDE
     Indication: DIABETES MELLITUS
     Route: 048
     Dates: start: 20210517, end: 20210518
  2. MODERNA COVID?19 VACCINE [Suspect]
     Active Substance: CX-024414
     Indication: IMMUNISATION
     Route: 030
     Dates: start: 20210517, end: 20210517

REACTIONS (6)
  - Vomiting [None]
  - Nausea [None]
  - Dehydration [None]
  - Acute kidney injury [None]
  - Electrolyte imbalance [None]
  - Diarrhoea [None]

NARRATIVE: CASE EVENT DATE: 20210518
